FAERS Safety Report 5150207-3 (Version None)
Quarter: 2006Q4

REPORT INFORMATION
  Report Type: 
  Country: None (occurrence: None)
  Receive Date: 20061108
  Receipt Date: 20061103
  Transmission Date: 20070319
  Serious: Yes (Hospitalization)
  Sender: FDA-Public Use
  Company Number: 149478USA

PATIENT
  Age: 34 Year
  Sex: Female

DRUGS (2)
  1. COPAXONE [Suspect]
     Indication: MULTIPLE SCLEROSIS
     Dosage: 20 (20 MG, 1 IN 1 D), SUBCUTANEOUS
     Route: 058
     Dates: start: 20060901
  2. MULTI-VITAMINS [Concomitant]

REACTIONS (3)
  - DRUG EXPOSURE DURING PREGNANCY [None]
  - PREGNANCY [None]
  - STEVENS-JOHNSON SYNDROME [None]
